FAERS Safety Report 6604084-1 (Version None)
Quarter: 2010Q1

REPORT INFORMATION
  Report Type: 
  Country: None (occurrence: None)
  Receive Date: 20100226
  Receipt Date: 20090513
  Transmission Date: 20100710
  Serious: No
  Sender: FDA-Public Use
  Company Number: A0784138A

PATIENT
  Age: 54 Year
  Sex: Female

DRUGS (5)
  1. LAMICTAL CD [Suspect]
     Indication: BIPOLAR DISORDER
     Dosage: 100MG TWICE PER DAY
     Route: 048
     Dates: start: 20050101, end: 20090301
  2. LYRICA [Concomitant]
  3. TRAMADOL HCL [Concomitant]
  4. BENAZEPRIL HYDROCHLORIDE [Concomitant]
  5. IBUPROFEN [Concomitant]

REACTIONS (4)
  - ARTHRALGIA [None]
  - HYPOAESTHESIA [None]
  - PAIN IN EXTREMITY [None]
  - THERAPEUTIC RESPONSE UNEXPECTED [None]
